FAERS Safety Report 6115238-5 (Version None)
Quarter: 2009Q1

REPORT INFORMATION
  Report Type: 
  Country: None (occurrence: None)
  Receive Date: 20090313
  Receipt Date: 20090309
  Transmission Date: 20090719
  Serious: Yes (Death, Life-Threatening, Hospitalization)
  Sender: FDA-Public Use
  Company Number: NO-MERCK-0403NOR00019

PATIENT
  Age: 36 Year
  Sex: Male

DRUGS (1)
  1. MODURETIC 5-50 [Suspect]
     Indication: HYPERTENSION
     Route: 048
     Dates: start: 20011217, end: 20020202

REACTIONS (4)
  - ACUTE LYMPHOCYTIC LEUKAEMIA [None]
  - APLASTIC ANAEMIA [None]
  - CHOLESTASIS [None]
  - JAUNDICE [None]
